FAERS Safety Report 4967618-9 (Version None)
Quarter: 2006Q2

REPORT INFORMATION
  Report Type: 
  Country: None (occurrence: None)
  Receive Date: 20060410
  Receipt Date: 20051216
  Transmission Date: 20061013
  Serious: Yes (Hospitalization)
  Sender: FDA-Public Use
  Company Number: 2005AP06512

PATIENT
  Age: 21751 Day
  Sex: Female

DRUGS (9)
  1. DIPRIVAN [Suspect]
     Indication: INDUCTION AND MAINTENANCE OF ANAESTHESIA
     Dosage: TARGET BLOOD CONCENTRATION 1 - 4 UG/ML
     Route: 042
     Dates: start: 20051214, end: 20051214
  2. CEFAMEZIN [Suspect]
     Indication: ANTIBIOTIC PROPHYLAXIS
     Route: 042
     Dates: start: 20051214, end: 20051214
  3. MUSCULAX [Concomitant]
     Indication: HYPOTONIA
     Route: 042
     Dates: start: 20051214, end: 20051214
  4. FENTANYL CITRATE [Concomitant]
     Indication: PAIN
     Route: 042
     Dates: start: 20051214, end: 20051214
  5. ATROPINE SULPHATE [Concomitant]
     Indication: MUSCLE DISORDER
     Route: 042
     Dates: start: 20051214, end: 20051214
  6. ACTIT [Concomitant]
     Route: 041
     Dates: start: 20051214, end: 20051214
  7. VEEN-F [Concomitant]
     Route: 041
     Dates: start: 20051214, end: 20051214
  8. NORMAL SALINE [Concomitant]
     Indication: ANTIBIOTIC PROPHYLAXIS
     Route: 042
     Dates: start: 20051214, end: 20051214
  9. VAGOSTIGMIN [Concomitant]
     Indication: MUSCLE DISORDER
     Route: 042
     Dates: start: 20051214, end: 20051214

REACTIONS (3)
  - BLOOD PRESSURE DECREASED [None]
  - HEPATITIS ACUTE [None]
  - HEPATITIS FULMINANT [None]
